FAERS Safety Report 18366425 (Version 2)
Quarter: 2021Q3

REPORT INFORMATION
  Report Type: Spontaneous
  Country: FR (occurrence: FR)
  Receive Date: 20201009
  Receipt Date: 20210721
  Transmission Date: 20211014
  Serious: Yes (Death, Other)
  Sender: FDA-Public Use
  Company Number: FR-PFIZER INC-2020384937

PATIENT
  Age: 66 Year
  Sex: Male

DRUGS (4)
  1. NERATINIB [Suspect]
     Active Substance: NERATINIB
     Indication: PANCREATIC CARCINOMA METASTATIC
     Dosage: 200 MG, DAILY
     Route: 048
     Dates: start: 201002, end: 2010
  2. VALSARTAN. [Concomitant]
     Active Substance: VALSARTAN
     Dosage: UNK
  3. OMEPRAZOLE. [Concomitant]
     Active Substance: OMEPRAZOLE
     Dosage: UNK
  4. TEMSIROLIMUS. [Suspect]
     Active Substance: TEMSIROLIMUS
     Indication: PANCREATIC CARCINOMA METASTATIC
     Dosage: 15 MG, WEEKLY
     Route: 042
     Dates: start: 201002, end: 2010

REACTIONS (10)
  - Thrombocytopenia [Unknown]
  - Colitis [Unknown]
  - Bladder obstruction [Unknown]
  - Dysuria [Unknown]
  - Recall phenomenon [Unknown]
  - Proctalgia [Unknown]
  - Anorectal ulcer [Unknown]
  - Bladder stenosis [Unknown]
  - Gastrointestinal angiectasia [Unknown]
  - Diarrhoea [Unknown]

NARRATIVE: CASE EVENT DATE: 2010
